FAERS Safety Report 4880956-3 (Version None)
Quarter: 2005Q4

REPORT INFORMATION
  Report Type: 
  Country: None (occurrence: None)
  Receive Date: 20051223
  Receipt Date: 20051004
  Transmission Date: 20060501
  Serious: No
  Sender: FDA-Public Use
  Company Number: 05P-163-0312831-00

PATIENT
  Age: 55 Year
  Sex: Female
  Weight: 61.2356 kg

DRUGS (7)
  1. HUMIRA [Suspect]
     Indication: RHEUMATOID ARTHRITIS
     Dosage: 40 MG, 1 IN 2 WK, SUBCUTANEOUS
     Route: 058
     Dates: start: 20040728, end: 20050915
  2. HUMIRA [Suspect]
     Indication: RHEUMATOID ARTHRITIS
     Dosage: 40 MG, 1 IN 2 WK, SUBCUTANEOUS
     Route: 058
     Dates: start: 20050921
  3. HUMIRA [Suspect]
     Indication: RHEUMATOID ARTHRITIS
     Dosage: 40 MG, 1 IN 2 WK, SUBCUTANEOUS
     Route: 058
     Dates: start: 20050929
  4. ESTOGENS CONJUGATED [Concomitant]
  5. TOCOPHEROL CONCENTRATE CAP [Concomitant]
  6. RISEDRONATE SODIUM [Concomitant]
  7. MILK THISTLE [Concomitant]

REACTIONS (3)
  - ACCIDENTAL OVERDOSE [None]
  - GASTROENTERITIS VIRAL [None]
  - INAPPROPRIATE SCHEDULE OF DRUG ADMINISTRATION [None]
